FAERS Safety Report 7216367-5 (Version None)
Quarter: 2011Q1

REPORT INFORMATION
  Report Type: 
  Country: None (occurrence: None)
  Receive Date: 20110107
  Receipt Date: 20101231
  Transmission Date: 20110831
  Serious: Yes (Death)
  Sender: FDA-Public Use
  Company Number: US-PFIZER INC-2011000420

PATIENT
  Age: 34 Year
  Sex: Male

DRUGS (2)
  1. ALPRAZOLAM [Suspect]
     Route: 055
  2. HEROIN [Suspect]
     Route: 055

REACTIONS (3)
  - CARDIAC ARREST [None]
  - RESPIRATORY ARREST [None]
  - INTENTIONAL DRUG MISUSE [None]
